FAERS Safety Report 6586974-1 (Version None)
Quarter: 2010Q1

REPORT INFORMATION
  Report Type: 
  Country: None (occurrence: None)
  Receive Date: 20100217
  Receipt Date: 20090402
  Transmission Date: 20100710
  Serious: No
  Sender: FDA-Public Use
  Company Number: US-ALLERGAN-0904560US

PATIENT
  Age: 36 Year
  Sex: Female

DRUGS (3)
  1. BOTOX COSMETIC [Suspect]
     Indication: SKIN WRINKLING
     Dosage: 50 UNITS, UNK
     Dates: start: 20090320, end: 20090320
  2. BOTOX COSMETIC [Suspect]
     Dosage: UNK, SINGLE
     Route: 030
  3. CLOMID [Concomitant]
     Indication: INFERTILITY

REACTIONS (6)
  - ERYTHEMA OF EYELID [None]
  - EYE SWELLING [None]
  - EYELID OEDEMA [None]
  - LIP SWELLING [None]
  - RASH [None]
  - URTICARIA [None]
